FAERS Safety Report 21768837 (Version 1)
Quarter: 2022Q4

REPORT INFORMATION
  Report Type: Spontaneous
  Country: US (occurrence: None)
  Receive Date: 20221222
  Receipt Date: 20221222
  Transmission Date: 20230112
  Serious: Yes (Hospitalization)
  Sender: FDA-Public Use
  Company Number: None

PATIENT
  Age: 38 Year
  Sex: Male

DRUGS (7)
  1. LENALIDOMIDE [Suspect]
     Active Substance: LENALIDOMIDE
     Indication: Plasma cell myeloma
     Dosage: 10 MG ORAL??TAKE 1 CAPSULE BY MOUTH DAILY FOR 21 DAYS OFF, TAKE WITH WATER, TAKE WITH OR WITHOUT FOO
     Route: 048
     Dates: start: 20221123
  2. LENALIDOMIDE [Suspect]
     Active Substance: LENALIDOMIDE
     Dosage: FREQUENCY : AS DIRECTED;?
     Route: 048
  3. DEPAKOTE [Concomitant]
     Active Substance: DIVALPROEX SODIUM
  4. DEXAMETHASONE [Concomitant]
     Active Substance: DEXAMETHASONE
  5. INVEGA SUST [Concomitant]
  6. KEPPRA [Concomitant]
     Active Substance: LEVETIRACETAM
  7. OXCARBAZEPAN [Concomitant]

REACTIONS (1)
  - Seizure [None]

NARRATIVE: CASE EVENT DATE: 20221219
